FAERS Safety Report 8794965 (Version 2)
Quarter: 2012Q4

REPORT INFORMATION
  Report Type: 
  Country: IT (occurrence: IT)
  Receive Date: 20120917
  Receipt Date: 20121002
  Transmission Date: 20130627
  Serious: Yes (Death)
  Sender: FDA-Public Use
  Company Number: IT-ROCHE-1127184

PATIENT
  Age: 49 Year
  Sex: Female

DRUGS (1)
  1. ROCEFIN [Suspect]
     Indication: MASTITIS
     Dosage: 1G/3.5 ML
     Route: 030
     Dates: start: 20120905, end: 20120905

REACTIONS (3)
  - Loss of consciousness [Fatal]
  - Pulse absent [Fatal]
  - Respiratory arrest [Fatal]
